FAERS Safety Report 24208909 (Version 1)
Quarter: 2024Q3

REPORT INFORMATION
  Report Type: Spontaneous
  Country: CN (occurrence: CN)
  Receive Date: 20240814
  Receipt Date: 20240814
  Transmission Date: 20241017
  Serious: Yes (Death, Hospitalization)
  Sender: STRIDES
  Company Number: CN-STRIDES ARCOLAB LIMITED-2024SP010099

PATIENT
  Age: 32 Year
  Sex: Male

DRUGS (6)
  1. MYCOPHENOLATE MOFETIL [Suspect]
     Active Substance: MYCOPHENOLATE MOFETIL
     Indication: Encephalitis autoimmune
     Dosage: 1.5 GRAM, QD
     Route: 065
     Dates: start: 2016
  2. MYCOPHENOLATE MOFETIL [Suspect]
     Active Substance: MYCOPHENOLATE MOFETIL
     Indication: Multiple sclerosis
     Dosage: 1 GRAM, QD
     Route: 065
     Dates: start: 2016
  3. MYCOPHENOLATE MOFETIL [Suspect]
     Active Substance: MYCOPHENOLATE MOFETIL
     Dosage: UNK, QD (1-2 G/DAY)
     Route: 065
     Dates: end: 202009
  4. FINGOLIMOD [Suspect]
     Active Substance: FINGOLIMOD
     Indication: Encephalitis autoimmune
     Dosage: 0.5 MILLIGRAM, QD
     Route: 065
     Dates: start: 202009
  5. FINGOLIMOD [Suspect]
     Active Substance: FINGOLIMOD
     Indication: Multiple sclerosis
  6. Immunoglobulin [Concomitant]
     Indication: Encephalitis autoimmune
     Dosage: UNK
     Route: 065
     Dates: start: 2016

REACTIONS (5)
  - Lymphoproliferative disorder [Fatal]
  - Brain neoplasm [Fatal]
  - Lung neoplasm [Fatal]
  - Apallic syndrome [Fatal]
  - Off label use [Unknown]

NARRATIVE: CASE EVENT DATE: 20160101
